FAERS Safety Report 25107312 (Version 2)
Quarter: 2025Q2

REPORT INFORMATION
  Report Type: Report from Study
  Country: US (occurrence: US)
  Receive Date: 20250321
  Receipt Date: 20250409
  Transmission Date: 20250716
  Serious: Yes (Other)
  Sender: ABBVIE
  Company Number: US-ABBVIE-6180677

PATIENT
  Age: 63 Year
  Sex: Female
  Weight: 63.502 kg

DRUGS (7)
  1. RINVOQ [Suspect]
     Active Substance: UPADACITINIB
     Indication: Psoriatic arthropathy
     Dosage: FORM STRENGTH: 15 MILLIGRAM
     Route: 048
     Dates: start: 20220316
  2. METHOTREXATE [Concomitant]
     Active Substance: METHOTREXATE
     Indication: Arthritis
  3. METFORMIN [Concomitant]
     Active Substance: METFORMIN HYDROCHLORIDE
     Indication: Post-acute COVID-19 syndrome
  4. FOLIC ACID [Concomitant]
     Active Substance: FOLIC ACID
     Indication: Vitamin supplementation
  5. VENLAFAXINE [Concomitant]
     Active Substance: VENLAFAXINE HYDROCHLORIDE
     Indication: Depression
  6. biotee [Concomitant]
     Indication: Hormone replacement therapy
  7. GEMTESA [Concomitant]
     Active Substance: VIBEGRON
     Indication: Hypertonic bladder

REACTIONS (1)
  - Anal squamous cell carcinoma [Recovered/Resolved]

NARRATIVE: CASE EVENT DATE: 20250204
